FAERS Safety Report 15017228 (Version 1)
Quarter: 2018Q2

REPORT INFORMATION
  Report Type: Spontaneous
  Country: US (occurrence: US)
  Receive Date: 20180523
  Receipt Date: 20180523
  Transmission Date: 20180711
  Serious: Yes (Death, Hospitalization)
  Sender: FDA-Public Use
  Company Number: None

PATIENT
  Age: 76 Year
  Sex: Male

DRUGS (1)
  1. IMBRUVICA [Suspect]
     Active Substance: IBRUTINIB
     Indication: CHRONIC LYMPHOCYTIC LEUKAEMIA

REACTIONS (5)
  - Chronic lymphocytic leukaemia [None]
  - Malignant neoplasm progression [None]
  - Pneumonia [None]
  - Infection [None]
  - Cardiac disorder [None]

NARRATIVE: CASE EVENT DATE: 20180424
